FAERS Safety Report 22259048 (Version 1)
Quarter: 2023Q2

REPORT INFORMATION
  Report Type: Report from Study
  Country: US (occurrence: US)
  Receive Date: 20230427
  Receipt Date: 20230427
  Transmission Date: 20230722
  Serious: Yes (Other)
  Sender: FDA-Public Use
  Company Number: US-MYLANLABS-2023M1044410

PATIENT
  Age: 27 Year
  Sex: Male
  Weight: 79 kg

DRUGS (32)
  1. ACYCLOVIR [Suspect]
     Active Substance: ACYCLOVIR
     Indication: Product used for unknown indication
     Dosage: 360 MILLIGRAM, BID (EVERY 12 HOURS), (360 MG IN DEXIROSE 5 % 100 ML BAG 5MG/KG)
     Route: 042
     Dates: start: 20220606, end: 20220606
  2. ACYCLOVIR [Suspect]
     Active Substance: ACYCLOVIR
     Dosage: 360 MILLIGRAM, BID (EVERY 12 HOURS), (360 MG IN DEXIROSE 5 % 100 ML BAG 5MG/KG)
     Route: 042
     Dates: start: 20220607, end: 20220607
  3. ACYCLOVIR [Suspect]
     Active Substance: ACYCLOVIR
     Dosage: 360 MILLIGRAM, BID (EVERY 12 HOURS), (360 MG IN DEXIROSE 5 % 100 ML BAG 5MG/KG)
     Route: 042
     Dates: start: 20220608, end: 20220608
  4. GILTERITINIB [Suspect]
     Active Substance: GILTERITINIB
     Indication: Product used for unknown indication
     Dosage: 120 MILLIGRAM, CYCLIC
     Route: 048
     Dates: start: 20220523, end: 20220525
  5. CYTARABINE [Suspect]
     Active Substance: CYTARABINE
     Indication: Acute myeloid leukaemia
     Dosage: 100 MILLIGRAM/SQ. METER, CYCLIC
     Route: 042
     Dates: start: 20220514
  6. DAUNORUBICIN HYDROCHLORIDE [Suspect]
     Active Substance: DAUNORUBICIN HYDROCHLORIDE
     Indication: Acute myeloid leukaemia
     Dosage: 90 MILLIGRAM/SQ. METER, CYCLIC
     Route: 042
     Dates: start: 20220514
  7. ZOSYN [Suspect]
     Active Substance: PIPERACILLIN SODIUM\TAZOBACTAM SODIUM
     Indication: Product used for unknown indication
     Dosage: 4.5 GRAM, TID (EVERY 8 HOURS (4.5GIN 0.9% NACL 100ML, EXTENDED 4 HOUR INFUSION)
     Route: 042
  8. ZOSYN [Suspect]
     Active Substance: PIPERACILLIN SODIUM\TAZOBACTAM SODIUM
     Dosage: 4.5 GRAM, TID (EVERY 8 HOURS (4.5GIN 0.9% NACL 100ML, EXTENDED 4 HOUR INFUSION)
     Route: 042
     Dates: start: 20220605, end: 20220605
  9. ZOSYN [Suspect]
     Active Substance: PIPERACILLIN SODIUM\TAZOBACTAM SODIUM
     Dosage: 4.5 GRAM, TID (EVERY 8 HOURS (4.5GIN 0.9% NACL 100ML, EXTENDED 4 HOUR INFUSION)
     Route: 042
     Dates: start: 20220606, end: 20220606
  10. ZOSYN [Suspect]
     Active Substance: PIPERACILLIN SODIUM\TAZOBACTAM SODIUM
     Dosage: 4.5 GRAM, TID (EVERY 8 HOURS (4.5GIN 0.9% NACL 100ML, EXTENDED 4 HOUR INFUSION)
     Route: 042
     Dates: start: 20220607, end: 20220607
  11. ZOSYN [Suspect]
     Active Substance: PIPERACILLIN SODIUM\TAZOBACTAM SODIUM
     Dosage: 4.5 GRAM, TID (EVERY 8 HOURS (4.5GIN 0.9% NACL 100ML, EXTENDED 4 HOUR INFUSION)
     Route: 042
     Dates: start: 20220608, end: 20220608
  12. CEFEPIME [Suspect]
     Active Substance: CEFEPIME HYDROCHLORIDE
     Indication: Product used for unknown indication
     Dosage: UNK
     Route: 065
  13. MYCAMINE [Suspect]
     Active Substance: MICAFUNGIN SODIUM
     Indication: Product used for unknown indication
     Dosage: 100 MILLIGRAM, QD (100MG IN 0.9% NACL 100ML, 100 MG)
     Route: 042
  14. MYCAMINE [Suspect]
     Active Substance: MICAFUNGIN SODIUM
     Dosage: 150 MILLIGRAM, QD (100MG IN IN 0.9% NACL 100ML, 100MG)
     Route: 042
     Dates: start: 20220606, end: 20220606
  15. MYCAMINE [Suspect]
     Active Substance: MICAFUNGIN SODIUM
     Dosage: 100 MILLIGRAM, QD, (100MG IN IN 0.9% NACL 100ML, 100MG)
     Route: 042
     Dates: start: 20220607, end: 20220607
  16. MYCAMINE [Suspect]
     Active Substance: MICAFUNGIN SODIUM
     Dosage: 100 MILLIGRAM, QD, (100MG IN IN 0.9% NACL 100ML, 100MG)
     Route: 042
     Dates: start: 20220608, end: 20220608
  17. DILAUDID [Concomitant]
     Active Substance: HYDROMORPHONE HYDROCHLORIDE
     Dosage: 0.5 MILLIGRAM
     Route: 065
     Dates: start: 20220605, end: 20220606
  18. TYLENOL [Concomitant]
     Active Substance: ACETAMINOPHEN
     Dosage: 1000 MILLIGRAM
     Route: 065
     Dates: start: 20220605, end: 20220606
  19. LOPERAMIDE HYDROCHLORIDE [Concomitant]
     Active Substance: LOPERAMIDE HYDROCHLORIDE
     Dosage: 2 MILLIGRAM
     Route: 065
     Dates: start: 20220605, end: 20220608
  20. CALCIUM CARBONATE [Concomitant]
     Active Substance: CALCIUM CARBONATE
     Dosage: UNK
     Route: 065
     Dates: start: 20220524, end: 20220524
  21. FAMOTIDINE [Concomitant]
     Active Substance: FAMOTIDINE
     Dosage: UNK
     Route: 065
     Dates: start: 20220522, end: 20220522
  22. LIDOCAINE VISCOUS [Concomitant]
     Active Substance: LIDOCAINE HYDROCHLORIDE
     Dosage: UNK
     Route: 065
     Dates: start: 20220522, end: 20220522
  23. MELATONIN [Concomitant]
     Active Substance: MELATONIN
     Dosage: UNK
     Route: 065
     Dates: start: 20220528, end: 20220528
  24. OXYMETAZOLINE [Concomitant]
     Active Substance: OXYMETAZOLINE
     Dosage: UNK
     Route: 065
     Dates: start: 20220516, end: 20220516
  25. POTASSIUM CHLORIDE [Concomitant]
     Active Substance: POTASSIUM CHLORIDE
     Dosage: UNK
     Route: 065
     Dates: start: 20220528, end: 20220530
  26. PIPERACILLIN SODIUM [Concomitant]
     Active Substance: PIPERACILLIN SODIUM
     Dosage: UNK
     Route: 065
  27. TAZOBACTAM SODIUM [Concomitant]
     Active Substance: TAZOBACTAM SODIUM
     Dosage: UNK
     Route: 065
  28. CARBOXYMETHYLCELLULOSE [Concomitant]
     Active Substance: CARBOXYMETHYLCELLULOSE
     Dosage: UNK
     Route: 065
  29. CARBOXYMETHYLCELLULOSE [Concomitant]
     Active Substance: CARBOXYMETHYLCELLULOSE
     Dosage: UNK, NIGHTLY
     Route: 042
     Dates: start: 20220524, end: 20220524
  30. CARBOXYMETHYLCELLULOSE [Concomitant]
     Active Substance: CARBOXYMETHYLCELLULOSE
     Dosage: 94.4 ML/HR
     Route: 042
     Dates: start: 20220605
  31. ACETAMINOPHEN [Concomitant]
     Active Substance: ACETAMINOPHEN
     Dosage: UNK
     Route: 065
  32. PROTOPORPHYRIN DISODIUM [Concomitant]
     Active Substance: PROTOPORPHYRIN DISODIUM
     Dosage: UNK
     Route: 065

REACTIONS (1)
  - Liver injury [Recovered/Resolved]

NARRATIVE: CASE EVENT DATE: 20220606
